FAERS Safety Report 5958321-7 (Version None)
Quarter: 2008Q4

REPORT INFORMATION
  Report Type: 
  Country: None (occurrence: None)
  Receive Date: 20081119
  Receipt Date: 20081112
  Transmission Date: 20090506
  Serious: Yes (Life-Threatening, Hospitalization)
  Sender: FDA-Public Use
  Company Number: GB-MERCK-0811GBR00049

PATIENT
  Age: 86 Year
  Sex: Female

DRUGS (18)
  1. FOSAMAX [Suspect]
     Indication: OSTEOPOROSIS PROPHYLAXIS
     Route: 048
     Dates: start: 20081019, end: 20081029
  2. CLOPIDOGREL BISULFATE [Suspect]
     Indication: ACUTE MYOCARDIAL INFARCTION
     Route: 048
     Dates: start: 20081009, end: 20081029
  3. DALTEPARIN SODIUM [Suspect]
     Indication: ACUTE MYOCARDIAL INFARCTION
     Route: 058
     Dates: start: 20081009, end: 20081011
  4. CHOLECALCIFEROL [Concomitant]
     Route: 065
  5. ASPIRIN [Concomitant]
     Route: 065
  6. BISOPROLOL FUMARATE [Concomitant]
     Route: 065
  7. ACETAMINOPHEN AND CODEINE PHOSPHATE [Concomitant]
     Route: 065
  8. DIGOXIN [Concomitant]
     Route: 065
  9. FUROSEMIDE [Concomitant]
     Route: 065
  10. FUSIDIC ACID [Concomitant]
     Route: 065
  11. HYDROCORTISONE SODIUM SUCCINATE [Concomitant]
     Route: 065
  12. LACTULOSE [Concomitant]
     Route: 065
  13. METOCLOPRAMIDE [Concomitant]
     Route: 065
  14. ACETAMINOPHEN [Concomitant]
     Route: 065
  15. PREDNISOLONE [Concomitant]
     Route: 065
  16. RANITIDINE [Concomitant]
     Route: 065
  17. SIMVASTATIN [Concomitant]
     Route: 065
  18. SPIRONOLACTONE [Concomitant]
     Route: 065

REACTIONS (1)
  - GASTROINTESTINAL HAEMORRHAGE [None]
